FAERS Safety Report 16536385 (Version 1)
Quarter: 2019Q3

REPORT INFORMATION
  Report Type: Spontaneous
  Country: US (occurrence: US)
  Receive Date: 20190706
  Receipt Date: 20190706
  Transmission Date: 20191004
  Serious: No
  Sender: FDA-Public Use
  Company Number: US-TEVA-2019-US-1071544

PATIENT
  Sex: Female

DRUGS (1)
  1. ATENOLOL AND CHLORTALIDONE [Suspect]
     Active Substance: ATENOLOL\CHLORTHALIDONE
     Indication: HYPERTENSION
     Dosage: DOSE STRENGTH:  50/25

REACTIONS (3)
  - Product dose omission [Unknown]
  - Malaise [Unknown]
  - Product odour abnormal [Unknown]
